FAERS Safety Report 4802341-2 (Version None)
Quarter: 2005Q4

REPORT INFORMATION
  Report Type: 
  Country: None (occurrence: None)
  Receive Date: 20051018
  Receipt Date: 20051004
  Transmission Date: 20060501
  Serious: Yes (Death, Life-Threatening, Hospitalization, Disabling)
  Sender: FDA-Public Use
  Company Number: GBWYE026804OCT05

PATIENT

DRUGS (11)
  1. ENBREL [Suspect]
     Indication: RHEUMATOID ARTHRITIS
     Dosage: UNKNOWN
     Route: 058
     Dates: start: 20041019
  2. BENDROFLUMETHIAZIDE [Concomitant]
  3. NYSTATIN [Concomitant]
  4. ASPIRIN [Concomitant]
  5. SIMVASTATIN [Concomitant]
     Dosage: 40MG
  6. PREDNISOLONE [Concomitant]
     Dosage: 5MG
  7. LANSOPRAZOLE [Concomitant]
     Dosage: 30MG
  8. RISEDRONATE [Concomitant]
  9. VANCOMYCIN [Concomitant]
  10. CALCICHEW [Concomitant]
     Route: 048
  11. VITAMINS [Concomitant]
     Dosage: UNKNOWN

REACTIONS (1)
  - DEATH [None]
